FAERS Safety Report 9992841 (Version 1)
Quarter: 2014Q1

REPORT INFORMATION
  Report Type: Spontaneous
  Country: IT (occurrence: IT)
  Receive Date: 20140310
  Receipt Date: 20140310
  Transmission Date: 20141002
  Serious: Yes (Other)
  Sender: FDA-Public Use
  Company Number: IT-AMGEN-ITASP2014015925

PATIENT
  Age: 58 Year
  Sex: Female

DRUGS (6)
  1. GRANULOKINE [Suspect]
     Indication: NEUTROPENIA
     Dosage: 5 MCG/KG, DAILY
     Route: 058
     Dates: start: 20131115, end: 20131115
  2. ENDOXAN                            /00021101/ [Concomitant]
     Indication: NON-HODGKIN^S LYMPHOMA
     Dosage: 750 MG, UNK
     Route: 042
     Dates: start: 20131106, end: 20131106
  3. ONKOTRONE [Concomitant]
     Indication: NON-HODGKIN^S LYMPHOMA
     Dosage: 12 MG, UNK
     Route: 042
     Dates: start: 20131106, end: 20131106
  4. VINCRISTINE TEVA [Concomitant]
     Indication: NON-HODGKIN^S LYMPHOMA
     Dosage: 1.4 MG, UNK
     Route: 042
     Dates: start: 20131106, end: 20131106
  5. MABTHERA [Concomitant]
     Indication: NON-HODGKIN^S LYMPHOMA
     Dosage: 100 MG, UNK
     Route: 042
     Dates: start: 20131115, end: 20131115
  6. PREDNISONE [Concomitant]
     Indication: NON-HODGKIN^S LYMPHOMA
     Dosage: UNK

REACTIONS (7)
  - Purpura [Recovered/Resolved]
  - Hepatitis C virus test positive [Unknown]
  - Tachycardia paroxysmal [Unknown]
  - Infusion related reaction [Unknown]
  - Pelvic pain [Unknown]
  - Tremor [Unknown]
  - Chills [Unknown]
